FAERS Safety Report 4468249-X (Version None)
Quarter: 2004Q4

REPORT INFORMATION
  Report Type: 
  Country: None (occurrence: None)
  Receive Date: 20041004
  Receipt Date: 20040921
  Transmission Date: 20050328
  Serious: Yes (Hospitalization)
  Sender: FDA-Public Use
  Company Number: 2001074885AT

PATIENT
  Age: 61 Year
  Sex: Male

DRUGS (9)
  1. CAMPTOSAR [Suspect]
     Indication: COLON CANCER
     Dosage: 180 MG/M2, CYCLIC, DAY 1, IV
     Route: 042
     Dates: start: 20010906, end: 20010906
  2. CAMPTOSAR [Suspect]
     Indication: COLON CANCER
     Dosage: 180 MG/M2, CYCLIC, DAY 1, IV
     Route: 042
     Dates: start: 20010920, end: 20010920
  3. LEUCOVORIN CALCIUM [Suspect]
     Indication: COLON CANCER
     Dosage: 200 MG/M2, CYCLIC, DAY 1-2, IV
     Route: 042
     Dates: start: 20010906, end: 20010908
  4. LEUCOVORIN CALCIUM [Suspect]
     Indication: COLON CANCER
     Dosage: 200 MG/M2, CYCLIC, DAY 1-2, IV
     Route: 042
     Dates: start: 20010920, end: 20010921
  5. FLUOROURACIL [Suspect]
     Indication: COLON CANCER
     Dosage: 1000 MG/M2, CYCKIC, DAY 1-2, IV
     Route: 042
     Dates: start: 20010906, end: 20010908
  6. ULSAL [Concomitant]
  7. TANTUM [Concomitant]
  8. NAVOBAN (TROPISETRON HYDROCHLORIDE) [Concomitant]
  9. LOSEC [Concomitant]

REACTIONS (8)
  - ANAEMIA [None]
  - CHOLANGITIS [None]
  - CHOLINERGIC SYNDROME [None]
  - ECHOCARDIOGRAM ABNORMAL [None]
  - HAEMORRHAGE [None]
  - HIATUS HERNIA [None]
  - HYPOTENSION [None]
  - PANCREATITIS ACUTE [None]
